FAERS Safety Report 24416855 (Version 1)
Quarter: 2024Q4

REPORT INFORMATION
  Report Type: Spontaneous
  Country: PL (occurrence: PL)
  Receive Date: 20241009
  Receipt Date: 20241009
  Transmission Date: 20250114
  Serious: Yes (Death, Other)
  Sender: ASTELLAS
  Company Number: PL-GILEAD-2024-0690227

PATIENT
  Age: 7 Month
  Sex: Female

DRUGS (1)
  1. AMBISOME [Suspect]
     Active Substance: AMPHOTERICIN B
     Indication: Aspergillus infection
     Dosage: 3 MG/KG
     Route: 065

REACTIONS (3)
  - Death [Fatal]
  - Oxygen saturation decreased [Unknown]
  - Bradycardia [Unknown]
